FAERS Safety Report 5842254-0 (Version None)
Quarter: 2008Q3

REPORT INFORMATION
  Report Type: 
  Country: None (occurrence: None)
  Receive Date: 20080812
  Receipt Date: 20080731
  Transmission Date: 20090109
  Serious: Yes (Death)
  Sender: FDA-Public Use
  Company Number: IT-AMGEN-UK280597

PATIENT
  Sex: Female

DRUGS (10)
  1. PANITUMUMAB [Suspect]
     Indication: COLORECTAL CANCER
     Route: 042
     Dates: start: 20071009, end: 20080123
  2. FLUOROURACIL [Concomitant]
     Dates: end: 20080123
  3. LEUCOVORIN CALCIUM [Concomitant]
     Dates: end: 20080123
  4. OXALIPLATIN [Concomitant]
     Dates: end: 20080123
  5. DEXAMETHASONE [Concomitant]
  6. CALCIUM CARBONATE/VITAMIN D3 [Concomitant]
  7. FERROGRAD [Concomitant]
  8. NEORECORMON [Concomitant]
     Route: 058
  9. KYTRIL [Concomitant]
  10. MAGNESIUM SULFATE [Concomitant]

REACTIONS (1)
  - MALIGNANT NEOPLASM PROGRESSION [None]
